FAERS Safety Report 9734078 (Version 1)
Quarter: 2013Q4

REPORT INFORMATION
  Report Type: Spontaneous
  Country: SE (occurrence: SE)
  Receive Date: 20131205
  Receipt Date: 20131205
  Transmission Date: 20140711
  Serious: Yes (Other)
  Sender: FDA-Public Use
  Company Number: SE-ACTAVIS-2013-22283

PATIENT
  Sex: Female

DRUGS (1)
  1. TRAMADOL ACTAVIS [Suspect]
     Indication: BACK PAIN
     Dosage: UNK
     Route: 065

REACTIONS (1)
  - Epilepsy [Unknown]
